FAERS Safety Report 6556799-1 (Version None)
Quarter: 2010Q1

REPORT INFORMATION
  Report Type: 
  Country: None (occurrence: None)
  Receive Date: 20100128
  Receipt Date: 20100118
  Transmission Date: 20100710
  Serious: Yes (Hospitalization)
  Sender: FDA-Public Use
  Company Number: PHHY2009MX49874

PATIENT
  Age: 80 Year
  Sex: Female
  Weight: 58 kg

DRUGS (3)
  1. DIOVAN HCT [Suspect]
     Indication: HYPERTENSION
     Dosage: 1 TABLET (160/25 MG) PER DAY
     Route: 065
     Dates: start: 20070801, end: 20091014
  2. DIOVAN HCT [Suspect]
     Dosage: 1 TABLET PER DAY
     Dates: start: 20100101
  3. BI-EGLUCON [Concomitant]

REACTIONS (4)
  - ABDOMINAL PAIN [None]
  - GASTRIC POLYPS [None]
  - HAEMATEMESIS [None]
  - POLYPECTOMY [None]
